FAERS Safety Report 5367303-8 (Version None)
Quarter: 2007Q2

REPORT INFORMATION
  Report Type: 
  Country: None (occurrence: None)
  Receive Date: 20070622
  Receipt Date: 20060615
  Transmission Date: 20071010
  Serious: No
  Sender: FDA-Public Use
  Company Number: US-ASTRAZENECA-2005UW08872

PATIENT
  Age: 41 Year
  Sex: Female
  Weight: 49.9 kg

DRUGS (7)
  1. PULMICORT RESPULES [Suspect]
     Indication: ASTHMA
     Dosage: 0.5 MG/2 ML
     Route: 055
     Dates: start: 20050110
  2. XOPENEX [Concomitant]
     Indication: ASTHMA
     Dosage: 0.63 MG/3 ML
     Dates: start: 20050110
  3. ZYRTEC [Concomitant]
     Dates: start: 19970101
  4. ASPIRIN [Concomitant]
     Dates: start: 20010501
  5. ATROVENT [Concomitant]
     Dates: start: 20030101
  6. EPINEPHRINE [Concomitant]
     Dates: start: 20030101
  7. MAXAIR [Concomitant]
     Dates: start: 20040101

REACTIONS (1)
  - TOOTH DISCOLOURATION [None]
